FAERS Safety Report 6261813-7 (Version None)
Quarter: 2009Q3

REPORT INFORMATION
  Report Type: 
  Country: None (occurrence: None)
  Receive Date: 20090709
  Receipt Date: 20081105
  Transmission Date: 20100115
  Serious: No
  Sender: FDA-Public Use
  Company Number: US-TYCO HEALTHCARE/MALLINCKRODT-T200801902

PATIENT

DRUGS (2)
  1. ACETAMINOPHEN AND HYDROCODONE BITARTRATE [Suspect]
     Indication: ARTHRITIS
     Dosage: 3 TSPS Q 4 HOURS
     Route: 048
     Dates: start: 20081028
  2. OXYCODONE HCL AND ACETAMINOPHEN [Concomitant]
     Indication: PAIN
     Route: 048
     Dates: start: 20080601, end: 20081001

REACTIONS (2)
  - DRUG EFFECT DECREASED [None]
  - DRUG EFFECT DELAYED [None]
